FAERS Safety Report 16758887 (Version 1)
Quarter: 2019Q3

REPORT INFORMATION
  Report Type: Spontaneous
  Country: US (occurrence: US)
  Receive Date: 20190711
  Receipt Date: 20190711
  Transmission Date: 20191005
  Serious: Yes (Hospitalization)
  Sender: FDA-Public Use
  Company Number: None

PATIENT
  Sex: Female

DRUGS (7)
  1. SERTRALINE [Concomitant]
     Active Substance: SERTRALINE HYDROCHLORIDE
  2. VITAMIN D [Concomitant]
     Active Substance: VITAMIN D NOS
  3. METHYLPRED [Concomitant]
     Active Substance: METHYLPREDNISOLONE
  4. HUMIRA [Suspect]
     Active Substance: ADALIMUMAB
     Dosage: ?          OTHER DOSE:1 PEN;?
     Route: 059
  5. LORAZEPAM. [Concomitant]
     Active Substance: LORAZEPAM
  6. PENTASA [Concomitant]
     Active Substance: MESALAMINE
  7. EXATE [Concomitant]

REACTIONS (1)
  - Breast cancer [None]
